FAERS Safety Report 6499210-1 (Version None)
Quarter: 2009Q4

REPORT INFORMATION
  Report Type: 
  Country: None (occurrence: None)
  Receive Date: 20091215
  Receipt Date: 20091203
  Transmission Date: 20100525
  Serious: Yes (Hospitalization)
  Sender: FDA-Public Use
  Company Number: JP-SANOFI-AVENTIS-F01200900997

PATIENT
  Age: 74 Year
  Sex: Male
  Weight: 53.3 kg

DRUGS (16)
  1. OXALIPLATIN [Suspect]
     Indication: PANCREATIC CARCINOMA NON-RESECTABLE
     Route: 041
     Dates: start: 20090916, end: 20090916
  2. TS-1 [Suspect]
     Indication: PANCREATIC CARCINOMA NON-RESECTABLE
     Route: 048
     Dates: start: 20090916, end: 20090930
  3. HYPEN [Concomitant]
     Indication: CANCER PAIN
     Route: 048
     Dates: start: 20090910
  4. OXYCONTIN [Concomitant]
     Indication: CANCER PAIN
     Route: 048
     Dates: start: 20090902
  5. OXINORM [Concomitant]
     Indication: CANCER PAIN
     Route: 048
     Dates: start: 20090914
  6. PRIMPERAN TAB [Concomitant]
     Indication: NAUSEA
     Route: 048
     Dates: start: 20090924
  7. MAGNESIUM OXIDE [Concomitant]
     Indication: CONSTIPATION
     Route: 042
     Dates: start: 20080501
  8. PURSENNID /SCH/ [Concomitant]
     Indication: CONSTIPATION
     Route: 048
     Dates: start: 20080501
  9. HIRUDOID [Concomitant]
     Indication: DRY SKIN
     Dates: start: 20090930
  10. GLYCERIN [Concomitant]
     Indication: CONSTIPATION
     Dates: start: 20090918
  11. ALL OTHER THERAPEUTIC PRODUCTS [Concomitant]
     Route: 048
     Dates: start: 20090918
  12. LACTEC [Concomitant]
     Route: 042
     Dates: start: 20090924
  13. KYTRIL [Concomitant]
     Route: 042
     Dates: start: 20090928
  14. VEEN D [Concomitant]
     Route: 042
     Dates: start: 20091004
  15. ELECTROLYTE SOLUTIONS [Concomitant]
     Route: 042
     Dates: start: 20091004, end: 20091004
  16. ELECTROLYTE SOLUTIONS [Concomitant]
     Route: 042
     Dates: start: 20091005

REACTIONS (19)
  - ABDOMINAL DISTENSION [None]
  - ALTERED STATE OF CONSCIOUSNESS [None]
  - AMNESIA [None]
  - BLOOD ALBUMIN DECREASED [None]
  - BLOOD SODIUM DECREASED [None]
  - CONSTIPATION [None]
  - DECREASED APPETITE [None]
  - DEHYDRATION [None]
  - DISORIENTATION [None]
  - DRY SKIN [None]
  - DYSSTASIA [None]
  - HAEMOGLOBIN DECREASED [None]
  - HEART RATE INCREASED [None]
  - HYPOPHAGIA [None]
  - LOSS OF CONSCIOUSNESS [None]
  - MALNUTRITION [None]
  - OEDEMA PERIPHERAL [None]
  - URINARY INCONTINENCE [None]
  - URINE KETONE BODY PRESENT [None]
